FAERS Safety Report 6193324-1 (Version None)
Quarter: 2009Q2

REPORT INFORMATION
  Report Type: 
  Country: None (occurrence: None)
  Receive Date: 20090514
  Receipt Date: 20090501
  Transmission Date: 20091009
  Serious: Yes (Other)
  Sender: FDA-Public Use
  Company Number: 2009S1007616

PATIENT
  Age: 49 Year
  Sex: Female

DRUGS (4)
  1. FENTANYL TRANSDERMAL SYSTEM [Suspect]
     Indication: FIBROMYALGIA
     Dosage: 75 UG; EVERY HOUR; TRANSDERMAL
     Route: 062
     Dates: start: 20080101, end: 20090430
  2. AMBIEN [Concomitant]
  3. OXYCODONE HCL [Concomitant]
  4. FLEXERIL [Concomitant]

REACTIONS (6)
  - APPLICATION SITE RASH [None]
  - DEVICE ADHESION ISSUE [None]
  - EYE SWELLING [None]
  - RASH [None]
  - SWELLING FACE [None]
  - SWOLLEN TONGUE [None]
